FAERS Safety Report 19162538 (Version 1)
Quarter: 2021Q2

REPORT INFORMATION
  Report Type: Spontaneous
  Country: CN (occurrence: CN)
  Receive Date: 20210420
  Receipt Date: 20210420
  Transmission Date: 20210717
  Serious: Yes (Other)
  Sender: FDA-Public Use
  Company Number: CN-BAXTER-2021BAX007503

PATIENT
  Age: 75 Year
  Sex: Male
  Weight: 54 kg

DRUGS (9)
  1. RITUXIMAB. [Suspect]
     Active Substance: RITUXIMAB
     Dosage: 0.9% NS 500ML + RITUXIMAB 500MG IV 50GTT/MIN ST
     Route: 041
     Dates: start: 20210318, end: 20210318
  2. 0.9% SODIUM CHLORIDE INJECTION [Suspect]
     Active Substance: SODIUM CHLORIDE
     Indication: MEDICATION DILUTION
     Dosage: 0.9% NS 100ML + RITUXIMAB 100MG IV15GTT/MIN ST
     Route: 041
     Dates: start: 20210318, end: 20210318
  3. EPIRUBICIN HYDROCHLORIDE. [Suspect]
     Active Substance: EPIRUBICIN HYDROCHLORIDE
     Indication: DIFFUSE LARGE B-CELL LYMPHOMA STAGE III
     Dosage: 0.9% NS 100ML + EPIRUBICIN 100MG IV40GTT/MIN ST D1
     Route: 041
     Dates: start: 20210318, end: 20210318
  4. PREDNISONE. [Suspect]
     Active Substance: PREDNISONE
     Indication: DIFFUSE LARGE B-CELL LYMPHOMA STAGE III
     Dosage: D1?5
     Route: 048
     Dates: start: 20210318, end: 20210322
  5. 0.9% SODIUM CHLORIDE INJECTION [Suspect]
     Active Substance: SODIUM CHLORIDE
     Dosage: 0.9% NS 500ML + RITUXIMAB 500MG IV 50GTT/MIN ST
     Route: 041
     Dates: start: 20210318, end: 20210318
  6. 0.9% SODIUM CHLORIDE INJECTION [Suspect]
     Active Substance: SODIUM CHLORIDE
     Dosage: 0.9% NS 100ML + EPIRUBICIN 100MG IV40GTT/MIN, ST, D1
     Route: 041
     Dates: start: 20210318, end: 20210318
  7. 0.9% SODIUM CHLORIDE INJECTION [Suspect]
     Active Substance: SODIUM CHLORIDE
     Dosage: 0.9% NS 500ML + CYCLOPHOSPHAMIDE 1.1G IV40GTT/MIN ST
     Route: 041
     Dates: start: 20210318, end: 20210318
  8. ENDOXAN [Suspect]
     Active Substance: CYCLOPHOSPHAMIDE
     Indication: DIFFUSE LARGE B-CELL LYMPHOMA STAGE III
     Dosage: 0.9% NS 500ML + CYCLOPHOSPHAMIDE 1.1G IV 40GTT/MIN ST
     Route: 041
     Dates: start: 20210318, end: 20210318
  9. RITUXIMAB. [Suspect]
     Active Substance: RITUXIMAB
     Indication: DIFFUSE LARGE B-CELL LYMPHOMA STAGE III
     Dosage: 0.9% NS 100ML + RITUXIMAB 100MG IV15GTT /MIN ST
     Route: 041
     Dates: start: 20210318, end: 20210318

REACTIONS (2)
  - Discomfort [Recovering/Resolving]
  - Myelosuppression [Recovering/Resolving]

NARRATIVE: CASE EVENT DATE: 20210326
